FAERS Safety Report 5736823-6 (Version None)
Quarter: 2008Q2

REPORT INFORMATION
  Report Type: 
  Country: None (occurrence: None)
  Receive Date: 20080508
  Receipt Date: 20080423
  Transmission Date: 20081010
  Serious: Yes (Other)
  Sender: FDA-Public Use
  Company Number: DSA_31798_2008

PATIENT
  Age: 75 Year
  Sex: Male

DRUGS (4)
  1. CARDIZEM [Suspect]
     Indication: MYOCARDIAL INFARCTION
     Dosage: (120 MG QD ORAL)
     Route: 048
  2. ACETYLSALICYLIC ACID SRT [Suspect]
     Indication: MYOCARDIAL INFARCTION
     Dosage: (75 MG QD ORAL)
     Route: 048
  3. SIMVASTATIN [Suspect]
     Indication: MYOCARDIAL INFARCTION
     Dosage: (20 MG QD ORAL)
     Route: 048
  4. SYMBICORT [Suspect]
     Indication: DRUG USE FOR UNKNOWN INDICATION
     Dosage: (DF)

REACTIONS (2)
  - HAEMATOMA [None]
  - HAEMORRHAGE [None]
